FAERS Safety Report 20678331 (Version 1)
Quarter: 2022Q2

REPORT INFORMATION
  Report Type: Spontaneous
  Country: SI (occurrence: SI)
  Receive Date: 20220406
  Receipt Date: 20220406
  Transmission Date: 20220721
  Serious: Yes (Other)
  Sender: FDA-Public Use
  Company Number: SI-Accord-259675

PATIENT
  Age: 55 Year
  Sex: Female

DRUGS (4)
  1. QUETIAPINE [Suspect]
     Active Substance: QUETIAPINE
     Indication: Anxiety
  2. SERTRALINE [Suspect]
     Active Substance: SERTRALINE HYDROCHLORIDE
     Indication: Anxiety
  3. PREGABALIN [Suspect]
     Active Substance: PREGABALIN
     Indication: Anxiety
     Dosage: 2X PER DAY, TOOK HIGHER DOSAGE OF PREGABALIN 2X150 MG DAILY
  4. TIANEPTINE SODIUM [Suspect]
     Active Substance: TIANEPTINE SODIUM
     Indication: Anxiety

REACTIONS (2)
  - Drug abuse [Unknown]
  - Drug ineffective [Unknown]
